FAERS Safety Report 5396015-X (Version None)
Quarter: 2007Q3

REPORT INFORMATION
  Report Type: 
  Country: None (occurrence: None)
  Receive Date: 20070724
  Receipt Date: 20070712
  Transmission Date: 20080115
  Serious: Yes (Hospitalization, Disabling)
  Sender: FDA-Public Use
  Company Number: US-PFIZER INC-2007058353

PATIENT
  Sex: Female
  Weight: 133.8 kg

DRUGS (2)
  1. BEXTRA [Suspect]
     Indication: ARTHRITIS
     Dates: start: 20020329, end: 20020501
  2. BEXTRA [Suspect]
     Indication: HERNIA PAIN
     Dates: start: 20040625, end: 20050101

REACTIONS (1)
  - CEREBROVASCULAR ACCIDENT [None]
